FAERS Safety Report 9375376 (Version 2)
Quarter: 2013Q3

REPORT INFORMATION
  Report Type: Spontaneous
  Country: JP (occurrence: JP)
  Receive Date: 20130628
  Receipt Date: 20130723
  Transmission Date: 20140515
  Serious: Yes (Life-Threatening, Other)
  Sender: FDA-Public Use
  Company Number: JP-009507513-1306JPN001597

PATIENT
  Age: 77 Year
  Sex: Male
  Weight: 50 kg

DRUGS (2)
  1. ESLAX INTRAVENOUS 25MG/2.5ML [Suspect]
     Indication: NEUROMUSCULAR BLOCKING THERAPY
     Dosage: 30MG/HR AND TOTAL DOSAGE 200 MG
     Route: 042
     Dates: start: 20130515, end: 20130515
  2. BRIDION INTRAVENOUS 200MG [Concomitant]
     Indication: NEUROMUSCULAR BLOCKADE REVERSAL
     Dosage: 4MG/KG
     Route: 042
     Dates: start: 20130515, end: 20130515

REACTIONS (2)
  - Recurrence of neuromuscular blockade [Recovered/Resolved]
  - Endotracheal intubation [Unknown]
